FAERS Safety Report 13881533 (Version 1)
Quarter: 2017Q3

REPORT INFORMATION
  Report Type: Spontaneous
  Country: FR (occurrence: FR)
  Receive Date: 20170818
  Receipt Date: 20170818
  Transmission Date: 20171127
  Serious: Yes (Hospitalization, Congenital Anomaly)
  Sender: FDA-Public Use
  Company Number: FR-ALLERGAN-1735288US

PATIENT
  Age: 1 Day
  Sex: Male
  Weight: 3.22 kg

DRUGS (14)
  1. INEXIUM [Suspect]
     Active Substance: ESOMEPRAZOLE
     Dosage: 20 MG, QD
     Route: 064
     Dates: start: 20170404, end: 20170713
  2. DAFALGAN [Concomitant]
     Active Substance: ACETAMINOPHEN
     Dosage: 3 MG, UNK
     Route: 065
     Dates: start: 20170404
  3. LOVENOX [Concomitant]
     Active Substance: ENOXAPARIN SODIUM
     Indication: MATERNAL EXPOSURE TIMING UNSPECIFIED
     Route: 065
     Dates: start: 20161206, end: 20170131
  4. SPECIAFOLDINE [Suspect]
     Active Substance: FOLIC ACID
     Indication: MATERNAL EXPOSURE TIMING UNSPECIFIED
     Dosage: 5 MG, QD
     Route: 064
  5. CORTANCYL [Concomitant]
     Active Substance: PREDNISONE
     Route: 065
     Dates: end: 20170713
  6. DAFALGAN CODEINE [Suspect]
     Active Substance: ACETAMINOPHEN\CODEINE PHOSPHATE
     Indication: MATERNAL EXPOSURE TIMING UNSPECIFIED
     Dosage: 6 DF, UNK
     Route: 064
     Dates: end: 20161206
  7. CORTANCYL [Concomitant]
     Active Substance: PREDNISONE
     Indication: MATERNAL EXPOSURE TIMING UNSPECIFIED
     Route: 065
     Dates: start: 20161206, end: 20161231
  8. ESCITALOPRAM OXALATE - BP [Suspect]
     Active Substance: ESCITALOPRAM OXALATE
     Indication: MATERNAL EXPOSURE TIMING UNSPECIFIED
     Route: 064
     Dates: start: 20161103, end: 20161206
  9. COUMADIN [Suspect]
     Active Substance: WARFARIN SODIUM
     Indication: MATERNAL EXPOSURE TIMING UNSPECIFIED
     Route: 064
     Dates: end: 20161206
  10. DAFALGAN CODEINE [Suspect]
     Active Substance: ACETAMINOPHEN\CODEINE PHOSPHATE
     Dosage: 2 DF, BID
     Route: 064
     Dates: start: 20170110, end: 20170404
  11. LOVENOX [Concomitant]
     Active Substance: ENOXAPARIN SODIUM
     Route: 065
     Dates: end: 20170713
  12. COLCHICINE. [Suspect]
     Active Substance: COLCHICINE
     Indication: MATERNAL EXPOSURE TIMING UNSPECIFIED
     Dosage: 1 MG, QD
     Route: 064
  13. INEXIUM [Suspect]
     Active Substance: ESOMEPRAZOLE
     Indication: MATERNAL EXPOSURE TIMING UNSPECIFIED
     Dosage: 40 MG, QD
     Route: 064
     Dates: end: 20161206
  14. DAFALGAN [Concomitant]
     Active Substance: ACETAMINOPHEN
     Indication: MATERNAL EXPOSURE TIMING UNSPECIFIED
     Route: 065
     Dates: start: 20161206, end: 20170110

REACTIONS (1)
  - Spina bifida [Unknown]

NARRATIVE: CASE EVENT DATE: 20170713
